FAERS Safety Report 8759711 (Version 1)
Quarter: 2012Q4

REPORT INFORMATION
  Report Type: 
  Country: US (occurrence: US)
  Receive Date: 20120829
  Receipt Date: 20120829
  Transmission Date: 20130627
  Serious: Yes (Hospitalization)
  Sender: FDA-Public Use
  Company Number: US-ASTRAZENECA-2012SE60260

PATIENT
  Age: 26 Year
  Sex: Female
  Weight: 5.4 kg

DRUGS (5)
  1. SEROQUEL XR [Suspect]
     Indication: BIPOLAR DISORDER
     Dosage: 200 MG EVERY MORNING AND 300 MG AT BEDTIME
     Route: 048
     Dates: start: 201202, end: 20120805
  2. RISPERDAL [Suspect]
     Dates: start: 20120805
  3. ADERRAL [Concomitant]
     Indication: ATTENTION DEFICIT/HYPERACTIVITY DISORDER
  4. KLONOPIN [Concomitant]
     Indication: ANXIETY
  5. PAIN MEDICATION [Concomitant]

REACTIONS (13)
  - Emotional disorder [Unknown]
  - Weight increased [Unknown]
  - Irritability [Unknown]
  - Off label use [Unknown]
  - Drug dose omission [None]
  - Injury [Unknown]
  - Insomnia [Unknown]
  - Agitation [Unknown]
  - Crying [Unknown]
  - Anger [Unknown]
  - Depression [Unknown]
  - General physical health deterioration [Unknown]
  - Depressed mood [Unknown]
